FAERS Safety Report 6691400-8 (Version None)
Quarter: 2010Q2

REPORT INFORMATION
  Report Type: 
  Country: None (occurrence: None)
  Receive Date: 20100414
  Receipt Date: 20091215
  Transmission Date: 20101027
  Serious: Yes (Other)
  Sender: FDA-Public Use
  Company Number: 09-531

PATIENT
  Age: 73 Year
  Sex: Female
  Weight: 79.3795 kg

DRUGS (8)
  1. ALEVE [Suspect]
     Indication: BACK PAIN
     Dosage: 440 MG, DAILY, ORAL
     Route: 048
     Dates: start: 20091110, end: 20091110
  2. ALEVE (CAPLET) [Suspect]
     Indication: PAIN
     Dosage: 440MG, DAILY, ORAL
     Route: 048
     Dates: start: 20091127, end: 20091128
  3. LISINOPRIL [Concomitant]
  4. LIPITOR [Concomitant]
  5. LEVOTHYROXINE SODIUM [Concomitant]
  6. ASPIRIN [Concomitant]
  7. NITROGLYCERIN [Concomitant]
  8. METOPROLOL [Concomitant]

REACTIONS (2)
  - PHARYNGEAL OEDEMA [None]
  - SWELLING [None]
